FAERS Safety Report 15202819 (Version 1)
Quarter: 2018Q3

REPORT INFORMATION
  Report Type: Spontaneous
  Country: US (occurrence: US)
  Receive Date: 20180726
  Receipt Date: 20180726
  Transmission Date: 20181010
  Serious: Yes (Hospitalization, Other)
  Sender: FDA-Public Use
  Company Number: US-PFIZER INC-2018297166

PATIENT
  Age: 74 Year
  Sex: Female
  Weight: 108 kg

DRUGS (2)
  1. LYRICA [Suspect]
     Active Substance: PREGABALIN
     Indication: DEPRESSION
     Dosage: 100 MG, 1X/DAY
     Route: 048
  2. LYRICA [Suspect]
     Active Substance: PREGABALIN
     Indication: PAIN
     Dosage: 100 MG, 3X/DAY
     Route: 048

REACTIONS (5)
  - Lymphoedema [Unknown]
  - Infection [Unknown]
  - Asthenia [Unknown]
  - Gait disturbance [Unknown]
  - Gastroenteritis [Unknown]

NARRATIVE: CASE EVENT DATE: 2017
